FAERS Safety Report 5244333-8 (Version None)
Quarter: 2007Q1

REPORT INFORMATION
  Report Type: 
  Country: None (occurrence: None)
  Receive Date: 20070222
  Receipt Date: 20070213
  Transmission Date: 20070707
  Serious: Yes (Death, Disabling)
  Sender: FDA-Public Use
  Company Number: ES-ELI_LILLY_AND_COMPANY-ES200702002553

PATIENT
  Age: 89 Year
  Sex: Male

DRUGS (3)
  1. FORTEO [Suspect]
     Indication: OSTEOPOROSIS
     Dosage: 20 UG, DAILY (1/D)
     Route: 058
     Dates: start: 20051101
  2. RISPERDAL [Concomitant]
  3. VALIUM [Concomitant]

REACTIONS (4)
  - CLAVICLE FRACTURE [None]
  - FALL [None]
  - HEAD BANGING [None]
  - MENTAL DISABILITY [None]
